FAERS Safety Report 10161797 (Version 1)
Quarter: 2014Q2

REPORT INFORMATION
  Report Type: Spontaneous
  Country: GB (occurrence: None)
  Receive Date: 20140507
  Receipt Date: 20140507
  Transmission Date: 20141212
  Serious: Yes (Other)
  Sender: FDA-Public Use
  Company Number: AUR-APL-2014-05312

PATIENT
  Sex: Male

DRUGS (2)
  1. MONTELUKAST (MONTELUKAST) [Suspect]
     Indication: ASTHMA
  2. OXYBUTYNIN (OXYBUTYNIN) [Concomitant]

REACTIONS (2)
  - Enuresis [None]
  - Pollakiuria [None]
